FAERS Safety Report 4907129-X (Version None)
Quarter: 2006Q1

REPORT INFORMATION
  Report Type: 
  Country: None (occurrence: None)
  Receive Date: 20060206
  Receipt Date: 20050406
  Transmission Date: 20060701
  Serious: Yes (Disabling, Other)
  Sender: FDA-Public Use
  Company Number: 2004-01-0968

PATIENT
  Age: 35 Year
  Sex: Male
  Weight: 70 kg

DRUGS (1)
  1. LORATADINE [Suspect]
     Indication: SEASONAL ALLERGY
     Dosage: 10MG QD ORAL
     Route: 048
     Dates: start: 20030501, end: 20030701

REACTIONS (2)
  - AUTOIMMUNE HEPATITIS [None]
  - HEPATITIS ACUTE [None]
